FAERS Safety Report 16244448 (Version 5)
Quarter: 2020Q4

REPORT INFORMATION
  Report Type: Report from Study
  Country: FR (occurrence: FR)
  Receive Date: 20190426
  Receipt Date: 20201209
  Transmission Date: 20210113
  Serious: Yes (Death, Hospitalization, Other)
  Sender: FDA-Public Use
  Company Number: FR-JNJFOC-20190425744

PATIENT
  Age: 71 Year
  Sex: Female
  Weight: 85 kg

DRUGS (36)
  1. STELARA [Suspect]
     Active Substance: USTEKINUMAB
     Route: 058
     Dates: start: 201801, end: 201802
  2. DESLORATADINE. [Concomitant]
     Active Substance: DESLORATADINE
     Dates: start: 201811
  3. ECO [Concomitant]
     Route: 065
     Dates: start: 20180323, end: 201804
  4. CORTANCYL [Concomitant]
     Active Substance: PREDNISONE
     Route: 065
     Dates: start: 201811
  5. CHLORAMBUCIL [Concomitant]
     Active Substance: CHLORAMBUCIL
  6. DERMOVAL                           /00008501/ [Concomitant]
     Active Substance: CLOBETASOL PROPIONATE
     Route: 065
     Dates: start: 20150408
  7. NOROXINE [Concomitant]
     Active Substance: NORFLOXACIN
     Route: 065
     Dates: start: 20160114, end: 20160201
  8. STRESAM [Concomitant]
     Active Substance: ETIFOXINE
     Route: 065
     Dates: start: 20180123
  9. NERISONE [Concomitant]
     Active Substance: DIFLUCORTOLONE VALERATE
     Route: 065
     Dates: start: 20180323, end: 20180423
  10. FLECAINE [Concomitant]
     Active Substance: FLECAINIDE
     Dates: start: 20170724
  11. KARDEGIC [Concomitant]
     Active Substance: ASPIRIN DL-LYSINE
     Route: 065
     Dates: start: 2015
  12. BETNEVAL [Concomitant]
     Active Substance: BETAMETHASONE VALERATE
     Route: 065
     Dates: start: 20150408
  13. FLECAINE [Concomitant]
     Active Substance: FLECAINIDE
     Dates: start: 20170728
  14. BETNEVAL [Concomitant]
     Active Substance: BETAMETHASONE VALERATE
  15. CLOBEX                             /00012002/ [Concomitant]
     Active Substance: CLOXACILLIN SODIUM
     Route: 065
  16. STELARA [Suspect]
     Active Substance: USTEKINUMAB
     Indication: PSORIASIS
     Route: 058
     Dates: start: 20170728, end: 20170828
  17. STELARA [Suspect]
     Active Substance: USTEKINUMAB
     Route: 058
     Dates: start: 20170828, end: 20171027
  18. KARDEGIC [Concomitant]
     Active Substance: ASPIRIN DL-LYSINE
     Route: 065
     Dates: start: 20130620
  19. ATARAX [Concomitant]
     Active Substance: HYDROXYZINE HYDROCHLORIDE
     Route: 065
     Dates: start: 20150408
  20. CHLORAMINOPHENE [Concomitant]
     Active Substance: CHLORAMBUCIL
     Route: 065
     Dates: start: 20181004, end: 20190124
  21. TRAMADOL. [Concomitant]
     Active Substance: TRAMADOL
     Route: 065
     Dates: start: 201811
  22. CLARELUX [Concomitant]
     Active Substance: CLOBETASOL PROPIONATE
  23. STELARA [Suspect]
     Active Substance: USTEKINUMAB
     Route: 058
     Dates: start: 20171027, end: 20180126
  24. AUGMENTIN [Concomitant]
     Active Substance: AMOXICILLIN\CLAVULANATE POTASSIUM
     Route: 065
     Dates: start: 20150327, end: 20150403
  25. DAIVOBET [Concomitant]
     Active Substance: BETAMETHASONE DIPROPIONATE\CALCIPOTRIENE
     Dates: start: 20151126
  26. LOCAPRED [Concomitant]
     Active Substance: DESONIDE
     Route: 065
     Dates: start: 20180323
  27. STELARA [Suspect]
     Active Substance: USTEKINUMAB
     Route: 058
     Dates: start: 20180126, end: 20180323
  28. GLYCEROTONE                        /00200601/ [Concomitant]
     Route: 065
     Dates: start: 20180323
  29. STRESAM [Concomitant]
     Active Substance: ETIFOXINE
     Route: 065
  30. STELARA [Suspect]
     Active Substance: USTEKINUMAB
     Route: 058
     Dates: start: 201708
  31. CHLORAMINOPHENE [Concomitant]
     Active Substance: CHLORAMBUCIL
     Route: 065
     Dates: start: 20181009
  32. PARACETAMOL [Concomitant]
     Active Substance: ACETAMINOPHEN
     Route: 065
     Dates: start: 201811
  33. CORTANCYL [Concomitant]
     Active Substance: PREDNISONE
     Route: 065
     Dates: start: 20181004
  34. CHLORAMBUCIL [Concomitant]
     Active Substance: CHLORAMBUCIL
     Route: 065
     Dates: start: 201811
  35. DERMOVAL                           /00008501/ [Concomitant]
     Active Substance: CLOBETASOL PROPIONATE
     Route: 065
     Dates: start: 20180717
  36. HYDROXYZINE [Concomitant]
     Active Substance: HYDROXYZINE HYDROCHLORIDE
     Route: 065
     Dates: start: 201811

REACTIONS (10)
  - Death [Fatal]
  - Off label use [Unknown]
  - Bundle branch block right [Unknown]
  - Dental cyst [Unknown]
  - Osteosclerosis [Unknown]
  - Cutaneous T-cell lymphoma [Not Recovered/Not Resolved]
  - Psoriasis [Unknown]
  - Mucormycosis [Unknown]
  - Inappropriate schedule of product administration [Unknown]
  - Osteoarthritis [Unknown]

NARRATIVE: CASE EVENT DATE: 201802
